FAERS Safety Report 14639325 (Version 1)
Quarter: 2018Q1

REPORT INFORMATION
  Report Type: Spontaneous
  Country: FR (occurrence: FR)
  Receive Date: 20180315
  Receipt Date: 20180315
  Transmission Date: 20180509
  Serious: Yes (Other)
  Sender: FDA-Public Use
  Company Number: FR-MERCK KGAA-2043770

PATIENT
  Sex: Female

DRUGS (1)
  1. NOVOTHYROX [Suspect]
     Active Substance: LEVOTHYROXINE SODIUM
     Indication: AUTOIMMUNE THYROIDITIS

REACTIONS (11)
  - Malaise [None]
  - Anxiety [None]
  - Fatigue [None]
  - Hyposomnia [None]
  - Balance disorder [None]
  - Decreased interest [None]
  - Asthenia [None]
  - Depression [None]
  - Social avoidant behaviour [None]
  - Dizziness [None]
  - Loss of libido [None]
